FAERS Safety Report 22189460 (Version 1)
Quarter: 2023Q2

REPORT INFORMATION
  Report Type: Spontaneous
  Country: PL (occurrence: PL)
  Receive Date: 20230410
  Receipt Date: 20230410
  Transmission Date: 20230721
  Serious: Yes (Hospitalization, Other)
  Sender: FDA-Public Use
  Company Number: PL-002147023-NVSC2023PL062748

PATIENT
  Age: 49 Year
  Sex: Male

DRUGS (25)
  1. DASATINIB [Suspect]
     Active Substance: DASATINIB
     Indication: Chronic myeloid leukaemia
     Dosage: 50 MG, QD (1-0-0)
     Dates: start: 2017
  2. DASATINIB [Suspect]
     Active Substance: DASATINIB
     Dosage: 50 MG, QD (1-0-0)
  3. BISOPROLOL [Suspect]
     Active Substance: BISOPROLOL
     Indication: Product used for unknown indication
     Dosage: 1.25 MG, QD
     Dates: start: 202012
  4. BISOPROLOL [Suspect]
     Active Substance: BISOPROLOL
     Dosage: 1.25 MG, QD (1-0-0)
     Dates: start: 202104
  5. BISOPROLOL [Suspect]
     Active Substance: BISOPROLOL
     Dosage: 1.25 MG, QD (1-0-0)
  6. SACUBITRIL\VALSARTAN [Suspect]
     Active Substance: SACUBITRIL\VALSARTAN
     Indication: Product used for unknown indication
     Dosage: UNK BID (97/103 MG)
     Dates: start: 202104
  7. SACUBITRIL\VALSARTAN [Suspect]
     Active Substance: SACUBITRIL\VALSARTAN
     Dosage: UNK BID (49/51 MG)
  8. SACUBITRIL\VALSARTAN [Suspect]
     Active Substance: SACUBITRIL\VALSARTAN
     Dosage: UNK BID (97/103 MG)
  9. FUROSEMIDE [Suspect]
     Active Substance: FUROSEMIDE
     Indication: Product used for unknown indication
     Dosage: 40 MG, QD
     Dates: start: 202012
  10. FUROSEMIDE [Suspect]
     Active Substance: FUROSEMIDE
     Dosage: 40 MG, PRN
     Dates: start: 202104
  11. TORSEMIDE [Suspect]
     Active Substance: TORSEMIDE
     Indication: Product used for unknown indication
     Dosage: 20 MG, QD (0-1-0)
     Dates: start: 202012
  12. TORSEMIDE [Suspect]
     Active Substance: TORSEMIDE
     Dosage: 5 MG, QD (1-0-0)
     Dates: start: 202104
  13. TORSEMIDE [Suspect]
     Active Substance: TORSEMIDE
     Dosage: 10 MG, QD (1-0-0)
  14. PANTOPRAZOLE [Suspect]
     Active Substance: PANTOPRAZOLE
     Indication: Product used for unknown indication
     Dosage: 20 MG, QD (1-0-0)
     Dates: start: 202012
  15. POTASSIUM CHLORIDE [Suspect]
     Active Substance: POTASSIUM CHLORIDE
     Indication: Product used for unknown indication
     Dosage: UNK, TID
     Dates: start: 202012
  16. POTASSIUM CHLORIDE [Suspect]
     Active Substance: POTASSIUM CHLORIDE
     Dosage: UNK, BID
     Dates: start: 202104
  17. POTASSIUM CHLORIDE [Suspect]
     Active Substance: POTASSIUM CHLORIDE
     Dosage: UNK, QD (1-0-0)
  18. DAPAGLIFLOZIN [Suspect]
     Active Substance: DAPAGLIFLOZIN
     Indication: Product used for unknown indication
     Dosage: 10 MG, QD (1-0-0)
  19. DAPAGLIFLOZIN [Suspect]
     Active Substance: DAPAGLIFLOZIN
     Dosage: 10 MG, QD
  20. ROSUVASTATIN [Suspect]
     Active Substance: ROSUVASTATIN
     Indication: Hypercholesterolaemia
     Dosage: 10 MG, QD (1X1 (0-0-1)
     Dates: start: 202012
  21. ROSUVASTATIN [Suspect]
     Active Substance: ROSUVASTATIN
     Dosage: 50 MG (0-0-1)
     Dates: start: 202104
  22. ROSUVASTATIN [Suspect]
     Active Substance: ROSUVASTATIN
     Dosage: UNK, QD (0-0-1)
  23. EPLERENONE [Suspect]
     Active Substance: EPLERENONE
     Indication: Product used for unknown indication
     Dosage: 50 MG, QD (0-1-0)
  24. EPLERENONE [Suspect]
     Active Substance: EPLERENONE
     Dosage: 25 MG, QD (0-1-0)
  25. PERINDOPRIL [Suspect]
     Active Substance: PERINDOPRIL
     Indication: Product used for unknown indication
     Dosage: 5 MG (0-0-1/2)
     Dates: start: 202012

REACTIONS (22)
  - Left ventricular dysfunction [Unknown]
  - Right ventricular dysfunction [Unknown]
  - Dyspnoea [Unknown]
  - Mitral valve incompetence [Unknown]
  - Ventricular extrasystoles [Unknown]
  - Dyspnoea exertional [Unknown]
  - Ventricular hypokinesia [Unknown]
  - Rales [Unknown]
  - Ventricular enlargement [Unknown]
  - Ejection fraction decreased [Unknown]
  - Ill-defined disorder [Unknown]
  - Tricuspid valve incompetence [Unknown]
  - Cough [Unknown]
  - Dilated cardiomyopathy [Unknown]
  - Fatigue [Unknown]
  - Atrial enlargement [Unknown]
  - Aortic valve sclerosis [Unknown]
  - Tachypnoea [Unknown]
  - Ventricular tachycardia [Unknown]
  - Exercise tolerance decreased [Unknown]
  - Cardiomyopathy [Unknown]
  - Oedema peripheral [Unknown]

NARRATIVE: CASE EVENT DATE: 20201201
